FAERS Safety Report 16821522 (Version 3)
Quarter: 2019Q4

REPORT INFORMATION
  Report Type: Report from Study
  Country: US (occurrence: US)
  Receive Date: 20190918
  Receipt Date: 20191111
  Transmission Date: 20200122
  Serious: Yes (Other)
  Sender: FDA-Public Use
  Company Number: US-PFIZER INC-2017525195

PATIENT
  Age: 60 Year
  Sex: Female

DRUGS (2)
  1. IBRANCE [Suspect]
     Active Substance: PALBOCICLIB
     Indication: BREAST CANCER METASTATIC
     Dosage: 125 MG, DAILY
     Route: 048
     Dates: start: 20170106, end: 20170328
  2. IBRANCE [Suspect]
     Active Substance: PALBOCICLIB
     Dosage: 100 MG, CYCLIC(21 OF 28 DAYS)
     Route: 048
     Dates: start: 20170329

REACTIONS (13)
  - Condition aggravated [Unknown]
  - Muscle strain [Unknown]
  - Haemoglobin decreased [Unknown]
  - Thrombocytopenia [Unknown]
  - Febrile neutropenia [Unknown]
  - Mucosal inflammation [Unknown]
  - Cytopenia [Unknown]
  - Neutropenia [Unknown]
  - Otitis externa [Unknown]
  - Lactose intolerance [Unknown]
  - Pain [Unknown]
  - Hypotension [Unknown]
  - Fatigue [Unknown]

NARRATIVE: CASE EVENT DATE: 2017
